FAERS Safety Report 13409473 (Version 1)
Quarter: 2017Q2

REPORT INFORMATION
  Report Type: Spontaneous
  Country: US (occurrence: US)
  Receive Date: 20170406
  Receipt Date: 20170406
  Transmission Date: 20170830
  Serious: No
  Sender: FDA-Public Use
  Company Number: US-JNJFOC-20170127394

PATIENT
  Age: 14 Year
  Sex: Male

DRUGS (1)
  1. PATRIOT RISPERIDONE [Suspect]
     Active Substance: RISPERIDONE
     Indication: AUTISM SPECTRUM DISORDER
     Route: 065

REACTIONS (5)
  - Aggression [Recovered/Resolved]
  - Educational problem [Recovered/Resolved]
  - Thinking abnormal [Recovered/Resolved]
  - Abnormal behaviour [Recovered/Resolved]
  - Feeling abnormal [Recovered/Resolved]
